FAERS Safety Report 17839466 (Version 2)
Quarter: 2020Q3

REPORT INFORMATION
  Report Type: Report from Study
  Country: US (occurrence: US)
  Receive Date: 20200529
  Receipt Date: 20200817
  Transmission Date: 20201103
  Serious: Yes (Death)
  Sender: FDA-Public Use
  Company Number: US-BAYER-2020-098220

PATIENT
  Age: 82 Year
  Sex: Female

DRUGS (3)
  1. OPSUMIT [Concomitant]
     Active Substance: MACITENTAN
     Dosage: UNK
  2. ADEMPAS [Suspect]
     Active Substance: RIOCIGUAT
     Indication: PULMONARY ARTERIAL HYPERTENSION
     Dosage: UNK
     Dates: start: 201701
  3. ADEMPAS [Suspect]
     Active Substance: RIOCIGUAT
     Indication: PULMONARY ARTERIAL HYPERTENSION
     Dosage: 2.5 MG, TID
     Dates: end: 20200504

REACTIONS (7)
  - Cardiogenic shock [Fatal]
  - Acute kidney injury [Fatal]
  - Pulmonary hypertension [Fatal]
  - Septic shock [Fatal]
  - Left ventricular failure [Fatal]
  - Cardio-respiratory arrest [Fatal]
  - Right ventricular failure [Fatal]
